FAERS Safety Report 8107446 (Version 4)
Quarter: 2012Q4

REPORT INFORMATION
  Report Type: 
  Country: US (occurrence: US)
  Receive Date: 20110825
  Receipt Date: 20121120
  Transmission Date: 20130627
  Serious: Yes (Hospitalization, Other)
  Sender: FDA-Public Use
  Company Number: US-ASTRAZENECA-2011SE49296

PATIENT
  Age: 75 Year
  Sex: Female
  Weight: 109.8 kg

DRUGS (20)
  1. NEXIUM [Suspect]
     Route: 048
  2. NEXIUM [Suspect]
     Dosage: GENERIC
     Route: 048
  3. FEXOFENADINE [Concomitant]
  4. FLUTICASONE [Concomitant]
     Dosage: TWO SPRAYS EACH NOSTRIL DAILY
     Route: 045
  5. ROPINIROLE [Concomitant]
     Indication: RESTLESS LEGS SYNDROME
     Dosage: 0.5 MG ONE AT SUPPER, THREE AT BEDTIME
  6. ROPINIROLE [Concomitant]
     Indication: RESTLESS LEGS SYNDROME
     Dosage: 0.5 MG THREE TO FOUR TABLETS AT BEDTIME
  7. IMMUNOTHERAPY [Concomitant]
     Dosage: EVERY THREE WEEKS
  8. AMITRIPTYLINE [Concomitant]
  9. AMITRIPTYLINE [Concomitant]
  10. TRAMADOL [Concomitant]
  11. DICYCLOMINE [Concomitant]
  12. SINGULAIR [Concomitant]
  13. MULTIVITAMIN [Concomitant]
     Dosage: ONE DAILY
  14. VITAMIN B 6 [Concomitant]
  15. OMEGA 3 FISH OIL [Concomitant]
  16. OMEGA 3 FISH OIL [Concomitant]
  17. GLUCOSAMINE CHONDROITIN SULFATE [Concomitant]
     Dosage: ONE DAILY
  18. VITAMIN D [Concomitant]
     Dosage: 2050 UNITS DAILY
  19. CALCIUM [Concomitant]
  20. MUCINEX [Concomitant]
     Dosage: EXTENDED RELEASE PRN

REACTIONS (23)
  - Porcelain gallbladder [Unknown]
  - Umbilical hernia [Unknown]
  - Hepatic steatosis [Unknown]
  - Cholecystitis chronic [Unknown]
  - Fibrosis [Unknown]
  - Calcification of muscle [Unknown]
  - Mucosal erosion [Unknown]
  - Gastrooesophageal reflux disease [Unknown]
  - Barrett^s oesophagus [Unknown]
  - Irritable bowel syndrome [Unknown]
  - Lactose intolerance [Unknown]
  - Sleep apnoea syndrome [Unknown]
  - Restless legs syndrome [Unknown]
  - Osteopenia [Unknown]
  - Granuloma annulare [Unknown]
  - Seborrhoeic dermatitis [Unknown]
  - Adverse event [Unknown]
  - Nasopharyngitis [Unknown]
  - Malaise [Unknown]
  - Hypersensitivity [Unknown]
  - Intentional drug misuse [Unknown]
  - Drug dose omission [Unknown]
  - Drug ineffective [Unknown]
